FAERS Safety Report 25697891 (Version 1)
Quarter: 2025Q3

REPORT INFORMATION
  Report Type: Spontaneous
  Country: CA (occurrence: CA)
  Receive Date: 20250819
  Receipt Date: 20250819
  Transmission Date: 20251021
  Serious: Yes (Other)
  Sender: TEVA
  Company Number: CA-TEVA-VS-3363622

PATIENT
  Age: 56 Year
  Sex: Female

DRUGS (5)
  1. GLATIRAMER [Suspect]
     Active Substance: GLATIRAMER
     Indication: Relapsing-remitting multiple sclerosis
     Route: 058
  2. MAGNESIUM CITRATE [Concomitant]
     Active Substance: MAGNESIUM CITRATE
     Indication: Product used for unknown indication
     Route: 065
  3. HERBALS\TURMERIC [Concomitant]
     Active Substance: HERBALS\TURMERIC
     Indication: Product used for unknown indication
     Route: 065
  4. VITAMINS NOS [Concomitant]
     Active Substance: VITAMINS
     Indication: Product used for unknown indication
     Route: 065
  5. VITAMIN D [Concomitant]
     Active Substance: VITAMIN D NOS
     Indication: Product used for unknown indication
     Route: 065

REACTIONS (12)
  - Hot flush [Not Recovered/Not Resolved]
  - Injection site reaction [Not Recovered/Not Resolved]
  - Palpitations [Not Recovered/Not Resolved]
  - Chills [Not Recovered/Not Resolved]
  - Erythema [Not Recovered/Not Resolved]
  - Panic disorder [Not Recovered/Not Resolved]
  - Abdominal pain [Not Recovered/Not Resolved]
  - Swelling face [Not Recovered/Not Resolved]
  - Product storage error [Not Recovered/Not Resolved]
  - Heart rate increased [Not Recovered/Not Resolved]
  - Vomiting [Not Recovered/Not Resolved]
  - Nausea [Not Recovered/Not Resolved]
